FAERS Safety Report 9121231 (Version 5)
Quarter: 2013Q3

REPORT INFORMATION
  Report Type: Spontaneous
  Country: US (occurrence: US)
  Receive Date: 20130225
  Receipt Date: 20130717
  Transmission Date: 20140515
  Serious: Yes (Hospitalization, Other)
  Sender: FDA-Public Use
  Company Number: US-009507513-1205USA02636

PATIENT
  Sex: Female
  Weight: 90.25 kg

DRUGS (10)
  1. FOSAMAX [Suspect]
     Indication: CEREBRAL PALSY
     Dosage: 70 MG, QW
     Route: 048
     Dates: start: 2001, end: 201107
  2. FOSAMAX [Suspect]
     Indication: BONE LOSS
  3. FOSAMAX PLUS D [Suspect]
     Indication: CEREBRAL PALSY
     Dosage: 70 MG, QW
     Route: 048
     Dates: start: 2001, end: 200802
  4. FOSAMAX PLUS D [Suspect]
     Indication: BONE LOSS
  5. ALENDRONATE SODIUM [Suspect]
     Indication: CEREBRAL PALSY
     Dosage: 70 MG, QW
     Route: 048
     Dates: start: 200803, end: 200807
  6. ALENDRONATE SODIUM [Suspect]
     Indication: BONE LOSS
  7. BONIVA [Suspect]
     Indication: OSTEOPOROSIS
     Dosage: 150 MG, QM
     Route: 048
     Dates: start: 200808, end: 2010
  8. BONIVA [Suspect]
     Indication: OSTEOPENIA
  9. BONIVA [Suspect]
     Indication: CEREBRAL PALSY
  10. BONIVA [Suspect]
     Indication: BONE LOSS

REACTIONS (37)
  - Femur fracture [Unknown]
  - Tibia fracture [Unknown]
  - Tibia fracture [Unknown]
  - Fibula fracture [Unknown]
  - Intramedullary rod insertion [Unknown]
  - Intramedullary rod insertion [Unknown]
  - Hip arthroplasty [Unknown]
  - Limb operation [Unknown]
  - Device dislocation [Unknown]
  - Hip arthroplasty [Unknown]
  - Femur fracture [Unknown]
  - Depression [Unknown]
  - Anxiety [Unknown]
  - Musculoskeletal stiffness [Unknown]
  - Osteoarthritis [Unknown]
  - Low turnover osteopathy [Unknown]
  - Joint effusion [Unknown]
  - Breakthrough pain [Unknown]
  - Urinary incontinence [Unknown]
  - Sleep apnoea syndrome [Unknown]
  - Large intestine polyp [Unknown]
  - Limb injury [Unknown]
  - Hypothyroidism [Unknown]
  - Excoriation [Unknown]
  - Dependent rubor [Unknown]
  - Knee deformity [Unknown]
  - Haemoglobin decreased [Unknown]
  - Medical device removal [Unknown]
  - Osteotomy [Unknown]
  - Arthritis [Unknown]
  - Rib fracture [Unknown]
  - Rib fracture [Unknown]
  - Rib fracture [Unknown]
  - Fall [Unknown]
  - Off label use [Unknown]
  - Gastrooesophageal reflux disease [Unknown]
  - Bone pain [Unknown]
